FAERS Safety Report 6371274-5 (Version None)
Quarter: 2009Q3

REPORT INFORMATION
  Report Type: 
  Country: None (occurrence: None)
  Receive Date: 20090923
  Receipt Date: 20070711
  Transmission Date: 20100115
  Serious: No
  Sender: FDA-Public Use
  Company Number: US-ASTRAZENECA-2007UW01696

PATIENT
  Age: 21173 Day
  Sex: Female
  Weight: 113.9 kg

DRUGS (12)
  1. SEROQUEL [Suspect]
     Indication: BIPOLAR DISORDER
     Route: 048
     Dates: start: 19981104, end: 20050601
  2. SEROQUEL [Suspect]
     Indication: ANXIETY
     Route: 048
     Dates: start: 19981104, end: 20050601
  3. SEROQUEL [Suspect]
     Dosage: 25 - 200 MG DAILY
     Route: 048
     Dates: start: 20010215
  4. SEROQUEL [Suspect]
     Dosage: 25 - 200 MG DAILY
     Route: 048
     Dates: start: 20010215
  5. RISPERDAL [Concomitant]
     Dates: start: 20010501, end: 20021001
  6. RISPERDAL [Concomitant]
     Dosage: 1 - 2 MG DAILY
     Dates: start: 20010512
  7. PROZAC [Concomitant]
     Dosage: 20 - 80 MG DAILY
     Dates: start: 20010215
  8. WELLBUTRIN SR [Concomitant]
     Dosage: 150 - 400 MG DAILY
     Dates: start: 20010215
  9. VALIUM [Concomitant]
     Dosage: 10 - 30 MG DAILY
     Dates: start: 20010512
  10. ATARAX [Concomitant]
     Dates: start: 20011120
  11. LEXAPRO [Concomitant]
     Dates: start: 20030318
  12. ZOLOFT [Concomitant]
     Dosage: 50 - 100 MG DAILY
     Dates: start: 20030722

REACTIONS (2)
  - OVERWEIGHT [None]
  - TYPE 2 DIABETES MELLITUS [None]
